FAERS Safety Report 17692425 (Version 1)
Quarter: 2020Q2

REPORT INFORMATION
  Report Type: Spontaneous
  Country: PT (occurrence: PT)
  Receive Date: 20200422
  Receipt Date: 20200422
  Transmission Date: 20200714
  Serious: Yes (Other)
  Sender: FDA-Public Use
  Company Number: PT-FRESENIUS KABI-FK202003838

PATIENT
  Age: 40 Year
  Sex: Female

DRUGS (2)
  1. ROPIVACAINE (MANUFACTURER UNKNOWN) [Suspect]
     Active Substance: ROPIVACAINE
     Indication: ANALGESIC THERAPY
     Dosage: 8 ML TOTAL
     Route: 008
  2. ROPIVACAINE (MANUFACTURER UNKNOWN) [Suspect]
     Active Substance: ROPIVACAINE
     Dosage: 5 ML TOTAL
     Route: 008

REACTIONS (4)
  - Facial paresis [Recovered/Resolved]
  - Diplopia [Recovered/Resolved]
  - Dysarthria [Recovered/Resolved]
  - Exposure during pregnancy [Recovered/Resolved]
